FAERS Safety Report 24992640 (Version 2)
Quarter: 2025Q3

REPORT INFORMATION
  Report Type: Report from Study
  Country: NP (occurrence: NP)
  Receive Date: 20250221
  Receipt Date: 20250814
  Transmission Date: 20251021
  Serious: Yes (Other)
  Sender: BEIGENE
  Company Number: NP-BEIGENE-BGN-2025-002459

PATIENT
  Age: 68 Year

DRUGS (1)
  1. BRUKINSA [Suspect]
     Active Substance: ZANUBRUTINIB
     Indication: Chronic lymphocytic leukaemia

REACTIONS (1)
  - Richter^s syndrome [Unknown]
